FAERS Safety Report 12082676 (Version 1)
Quarter: 2016Q1

REPORT INFORMATION
  Report Type: Spontaneous
  Country: US (occurrence: None)
  Receive Date: 20160212
  Receipt Date: 20160212
  Transmission Date: 20160526
  Serious: Yes (Disabling)
  Sender: FDA-Public Use
  Company Number: None

PATIENT
  Age: 85 Year
  Sex: Female
  Weight: 69.85 kg

DRUGS (1)
  1. PROLIA [Suspect]
     Active Substance: DENOSUMAB

REACTIONS (4)
  - Activities of daily living impaired [None]
  - Bone pain [None]
  - Pruritus generalised [None]
  - Myalgia [None]

NARRATIVE: CASE EVENT DATE: 20160211
